FAERS Safety Report 18281431 (Version 1)
Quarter: 2020Q3

REPORT INFORMATION
  Report Type: Spontaneous
  Country: US (occurrence: US)
  Receive Date: 20200917
  Receipt Date: 20200917
  Transmission Date: 20201103
  Serious: No
  Sender: FDA-Public Use
  Company Number: None

PATIENT
  Age: 62 Year
  Sex: Male

DRUGS (6)
  1. FLOMAX [Concomitant]
     Active Substance: TAMSULOSIN HYDROCHLORIDE
  2. LISINOPRIL. [Concomitant]
     Active Substance: LISINOPRIL
  3. LEVOTHYROXINE. [Concomitant]
     Active Substance: LEVOTHYROXINE
  4. AMLODIPINE [Concomitant]
     Active Substance: AMLODIPINE BESYLATE
  5. VITAMIN D [Concomitant]
     Active Substance: VITAMIN D NOS
  6. ANDRODERM [Suspect]
     Active Substance: TESTOSTERONE
     Indication: HYPOGONADISM
     Dosage: ?          QUANTITY:1 PATCH(ES);?
     Route: 062

REACTIONS (10)
  - Application site erythema [None]
  - Skin exfoliation [None]
  - Blood testosterone decreased [None]
  - Suspected product quality issue [None]
  - Fatigue [None]
  - Pruritus [None]
  - Dry throat [None]
  - Application site pruritus [None]
  - Drug ineffective [None]
  - Device physical property issue [None]

NARRATIVE: CASE EVENT DATE: 20200731
